FAERS Safety Report 25627397 (Version 2)
Quarter: 2025Q3

REPORT INFORMATION
  Report Type: Spontaneous
  Country: JP (occurrence: JP)
  Receive Date: 20250731
  Receipt Date: 20250915
  Transmission Date: 20251020
  Serious: Yes (Life-Threatening, Hospitalization, Other)
  Sender: PFIZER
  Company Number: JP-PFIZER INC-PV202500090991

PATIENT
  Age: 75 Year
  Sex: Male
  Weight: 62 kg

DRUGS (10)
  1. RHEUMATREX [Suspect]
     Active Substance: METHOTREXATE SODIUM
     Indication: Rheumatoid arthritis
     Route: 048
     Dates: end: 20250704
  2. SULFAMETHOXAZOLE\TRIMETHOPRIM [Concomitant]
     Active Substance: SULFAMETHOXAZOLE\TRIMETHOPRIM
     Dates: end: 20250706
  3. IGURATIMOD [Concomitant]
     Active Substance: IGURATIMOD
     Dates: end: 20250706
  4. MINODRONIC ACID TOWA [Concomitant]
     Dates: end: 20250706
  5. CELECOXIB TOWA [Concomitant]
     Dates: end: 20250706
  6. REBAMIPIDE [Concomitant]
     Active Substance: REBAMIPIDE
     Dates: end: 20250706
  7. GLYCOPYRROLATE [Concomitant]
     Active Substance: GLYCOPYRROLATE
     Dosage: 1 DF, 1X/DAY (1 CAPSULE, ONCE A DAY)
  8. KETOPROFEN [Concomitant]
     Active Substance: KETOPROFEN
     Dosage: UNK, 1X/DAY (2 SHEETS, ATTACH TO THE RIGHT WRIST ONCE A DAY)
  9. TEPRENONE [Concomitant]
     Active Substance: TEPRENONE
     Dates: end: 20250706
  10. VONOPRAZAN FUMARATE [Concomitant]
     Active Substance: VONOPRAZAN FUMARATE
     Dates: end: 20250706

REACTIONS (8)
  - Full blood count decreased [Recovering/Resolving]
  - Anaemia macrocytic [Recovering/Resolving]
  - C-reactive protein increased [Unknown]
  - Movement disorder [Unknown]
  - Fall [Unknown]
  - Head injury [Unknown]
  - Body temperature increased [Unknown]
  - Decreased appetite [Unknown]

NARRATIVE: CASE EVENT DATE: 20250703
